FAERS Safety Report 11598702 (Version 1)
Quarter: 2015Q3

REPORT INFORMATION
  Report Type: Spontaneous
  Country: US (occurrence: US)
  Receive Date: 20150916
  Receipt Date: 20150916
  Transmission Date: 20151125
  Serious: No
  Sender: FDA-Public Use
  Company Number: US-ELI_LILLY_AND_COMPANY-US200712000318

PATIENT
  Sex: Female

DRUGS (2)
  1. BYETTA [Concomitant]
     Active Substance: EXENATIDE
     Dates: start: 20071012, end: 20071116
  2. FORTEO [Suspect]
     Active Substance: TERIPARATIDE
     Dates: start: 20071012, end: 20071116

REACTIONS (3)
  - Hypersensitivity [Recovered/Resolved]
  - Abdominal discomfort [Recovered/Resolved]
  - Diarrhoea [Recovered/Resolved]

NARRATIVE: CASE EVENT DATE: 2007
